FAERS Safety Report 16899893 (Version 1)
Quarter: 2019Q4

REPORT INFORMATION
  Report Type: Spontaneous
  Country: US (occurrence: US)
  Receive Date: 20190815
  Receipt Date: 20190815
  Transmission Date: 20200122
  Serious: Yes (Hospitalization)
  Sender: FDA-Public Use
  Company Number: None

PATIENT
  Age: 89 Year
  Sex: Male
  Weight: 81.65 kg

DRUGS (12)
  1. CLOPIDOGREL [Concomitant]
     Active Substance: CLOPIDOGREL BISULFATE
  2. PROLIA [Suspect]
     Active Substance: DENOSUMAB
  3. TAMSULOSIN [Concomitant]
     Active Substance: TAMSULOSIN
  4. OSCAL (CALCIUM + D3) [Concomitant]
  5. ESSENTIAL OILS (LAVENDER, LEMON, PEPPERMINT) [Concomitant]
  6. VALSARTAN. [Concomitant]
     Active Substance: VALSARTAN
  7. ATORVASTATIN [Concomitant]
     Active Substance: ATORVASTATIN
  8. AREDS 2 [Concomitant]
     Active Substance: MINERALS\VITAMINS
  9. TYLENOL P.M [Concomitant]
  10. ELIGARD [Suspect]
     Active Substance: LEUPROLIDE ACETATE
     Indication: PROSTATE CANCER
     Dosage: ?          OTHER FREQUENCY:EACH 6 MONTHS;?
     Route: 042
     Dates: start: 20190129, end: 20190729
  11. AMLODIPINE BESYLATE. [Concomitant]
     Active Substance: AMLODIPINE BESYLATE
  12. IRON [Concomitant]
     Active Substance: IRON

REACTIONS (1)
  - Cerebrovascular accident [None]

NARRATIVE: CASE EVENT DATE: 20190705
